FAERS Safety Report 18502421 (Version 1)
Quarter: 2020Q4

REPORT INFORMATION
  Report Type: Spontaneous
  Country: CN (occurrence: CN)
  Receive Date: 20201113
  Receipt Date: 20201113
  Transmission Date: 20210114
  Serious: Yes (Death, Hospitalization)
  Sender: FDA-Public Use
  Company Number: CN-PERRIGO-20CN016111

PATIENT
  Age: 66 Year
  Sex: Female

DRUGS (1)
  1. OMEPRAZOLE. [Suspect]
     Active Substance: OMEPRAZOLE
     Indication: ABDOMINAL DISTENSION
     Dosage: 20 MG, QD
     Route: 048
     Dates: start: 20150814, end: 20150827

REACTIONS (4)
  - Drug reaction with eosinophilia and systemic symptoms [Fatal]
  - Metabolic acidosis [Unknown]
  - Acute kidney injury [Fatal]
  - Hyponatraemia [Unknown]

NARRATIVE: CASE EVENT DATE: 201508
